FAERS Safety Report 4979824-8 (Version None)
Quarter: 2006Q2

REPORT INFORMATION
  Report Type: 
  Country: None (occurrence: None)
  Receive Date: 20060421
  Receipt Date: 20051013
  Transmission Date: 20061013
  Serious: Yes (Hospitalization, Other)
  Sender: FDA-Public Use
  Company Number: PR-MERCK-0510USA07438

PATIENT
  Age: 67 Year
  Sex: Female
  Weight: 59 kg

DRUGS (10)
  1. VIOXX [Suspect]
     Indication: ARTHRALGIA
     Route: 048
     Dates: start: 20000101, end: 20040101
  2. VIOXX [Suspect]
     Indication: OSTEOARTHRITIS
     Route: 048
     Dates: start: 20000101, end: 20040101
  3. CELEBREX [Concomitant]
     Route: 065
     Dates: start: 20010101
  4. LIPITOR [Concomitant]
     Indication: BLOOD CHOLESTEROL INCREASED
     Route: 065
     Dates: start: 19990615, end: 20040102
  5. PROZAC [Concomitant]
     Indication: DEPRESSION
     Route: 065
     Dates: start: 19960301
  6. NITROSTAT [Concomitant]
     Indication: ANGINA PECTORIS
     Route: 065
     Dates: start: 19981230, end: 20040102
  7. INDERAL [Concomitant]
     Indication: HYPERTENSION
     Route: 065
     Dates: start: 19981230, end: 20040102
  8. INDERAL [Concomitant]
     Indication: MIGRAINE
     Route: 065
     Dates: start: 19981230, end: 20040102
  9. DIOVAN [Concomitant]
     Indication: HYPERTENSION
     Route: 065
     Dates: start: 20000424, end: 20030509
  10. TRANXENE [Concomitant]
     Indication: ANXIETY
     Route: 065
     Dates: start: 19981230, end: 20030730

REACTIONS (21)
  - ACUTE MYOCARDIAL INFARCTION [None]
  - ANOREXIA [None]
  - BURNING SENSATION [None]
  - CARDIAC DISORDER [None]
  - CARDIAC VALVE DISEASE [None]
  - CHEST PAIN [None]
  - CHRONIC FATIGUE SYNDROME [None]
  - CHRONIC OBSTRUCTIVE PULMONARY DISEASE [None]
  - DEEP VEIN THROMBOSIS [None]
  - DYSPNOEA [None]
  - EYE HAEMORRHAGE [None]
  - HEART RATE IRREGULAR [None]
  - HERPES VIRUS INFECTION [None]
  - INFECTION [None]
  - LEG AMPUTATION [None]
  - LIVER DISORDER [None]
  - MUSCULOSKELETAL DISORDER [None]
  - NAUSEA [None]
  - OEDEMA PERIPHERAL [None]
  - RENAL FAILURE [None]
  - TRANSIENT ISCHAEMIC ATTACK [None]
